FAERS Safety Report 10024406 (Version 4)
Quarter: 2014Q1

REPORT INFORMATION
  Report Type: Spontaneous
  Country: JP (occurrence: None)
  Receive Date: 20140203
  Receipt Date: 20140225
  Transmission Date: 20141002
  Serious: Yes (Death, Other)
  Sender: FDA-Public Use
  Company Number: ADR-2014-00152

PATIENT
  Age: 80 Year
  Sex: Male
  Weight: 57 kg

DRUGS (1)
  1. GABALON INTRATHECAL [Suspect]
     Dates: start: 20120514, end: 20140124

REACTIONS (4)
  - Death [None]
  - Ileus [None]
  - Megacolon [None]
  - Marasmus [None]
